FAERS Safety Report 14337631 (Version 1)
Quarter: 2017Q4

REPORT INFORMATION
  Report Type: Other
  Country: JP (occurrence: JP)
  Receive Date: 20171229
  Receipt Date: 20171229
  Transmission Date: 20180321
  Serious: Yes (Life-Threatening, Hospitalization)
  Sender: FDA-Public Use
  Company Number: JP-NOSTRUM LABORATORIES, INC.-2038018

PATIENT
  Age: 49 Year
  Sex: Male

DRUGS (2)
  1. PHENOBARBITAL. [Interacting]
     Active Substance: PHENOBARBITAL
     Route: 048
  2. PROMETHAZINE HYDROCHLORIDE. [Suspect]
     Active Substance: PROMETHAZINE HYDROCHLORIDE
     Route: 048

REACTIONS (1)
  - Coma [Recovered/Resolved]
